FAERS Safety Report 7360797-8 (Version None)
Quarter: 2011Q1

REPORT INFORMATION
  Report Type: 
  Country: None (occurrence: None)
  Receive Date: 20110318
  Receipt Date: 20110304
  Transmission Date: 20110831
  Serious: Yes (Other)
  Sender: FDA-Public Use
  Company Number: US-SANOFI-AVENTIS-2011SA014129

PATIENT
  Age: 67 Year
  Sex: Female

DRUGS (5)
  1. INVESTIGATIONAL DRUG [Concomitant]
  2. MULTAQ [Suspect]
     Indication: ATRIAL FIBRILLATION
     Route: 048
     Dates: start: 20091006
  3. LISINOPRIL [Concomitant]
  4. HYDROCHLOROTHIAZIDE [Concomitant]
  5. PINDOLOL [Concomitant]

REACTIONS (4)
  - MALAISE [None]
  - ELECTROCARDIOGRAM PR PROLONGATION [None]
  - ATRIAL FIBRILLATION [None]
  - TACHYCARDIA [None]
